FAERS Safety Report 7641430-4 (Version None)
Quarter: 2011Q3

REPORT INFORMATION
  Report Type: 
  Country: None (occurrence: None)
  Receive Date: 20110727
  Receipt Date: 20110727
  Transmission Date: 20111222
  Serious: Yes (Life-Threatening, Hospitalization)
  Sender: FDA-Public Use
  Company Number: None

PATIENT
  Sex: Male
  Weight: 130 kg

DRUGS (1)
  1. PRADAXA [Suspect]
     Indication: ATRIAL FIBRILLATION
     Dates: start: 20110311, end: 20110611

REACTIONS (6)
  - RENAL FAILURE [None]
  - INTERNATIONAL NORMALISED RATIO INCREASED [None]
  - ACTIVATED PARTIAL THROMBOPLASTIN TIME PROLONGED [None]
  - HAEMATURIA [None]
  - HAEMATEMESIS [None]
  - PROTHROMBIN TIME PROLONGED [None]
